FAERS Safety Report 16130207 (Version 1)
Quarter: 2019Q1

REPORT INFORMATION
  Report Type: Spontaneous
  Country: US (occurrence: US)
  Receive Date: 20190328
  Receipt Date: 20190328
  Transmission Date: 20190418
  Serious: No
  Sender: FDA-Public Use
  Company Number: US-ELI_LILLY_AND_COMPANY-US201903013322

PATIENT
  Sex: Female

DRUGS (1)
  1. EMGALITY [Suspect]
     Active Substance: GALCANEZUMAB-GNLM
     Indication: MIGRAINE
     Dosage: 120 MG, UNKNOWN
     Route: 058
     Dates: start: 201811

REACTIONS (5)
  - Nausea [Recovered/Resolved]
  - Depression [Recovered/Resolved]
  - Tension headache [Recovering/Resolving]
  - Anxiety [Recovered/Resolved]
  - Fatigue [Recovered/Resolved]
